FAERS Safety Report 26044467 (Version 1)
Quarter: 2025Q4

REPORT INFORMATION
  Report Type: Spontaneous
  Country: US (occurrence: US)
  Receive Date: 20251114
  Receipt Date: 20251114
  Transmission Date: 20260117
  Serious: No
  Sender: ALVOGEN
  Company Number: US-ALVOGEN-2025096466

PATIENT
  Sex: Female

DRUGS (3)
  1. TERIPARATIDE [Suspect]
     Active Substance: TERIPARATIDE
     Indication: Osteoporosis
     Dosage: FIRST PEN?STRENGTH: 250MCG/ML
     Route: 058
     Dates: start: 202412
  2. TERIPARATIDE [Suspect]
     Active Substance: TERIPARATIDE
     Indication: Osteoporosis
     Dosage: EXPIRATION DATE: 30-SEP-2025?ONGOING?STRENGTH: 250 MCG/ML?TOOK 7 DOSES
     Route: 058
     Dates: start: 20250225
  3. TYMLOS PF PEN [Concomitant]
     Indication: Product used for unknown indication

REACTIONS (4)
  - Device malfunction [Unknown]
  - Device operational issue [Unknown]
  - Device use issue [Unknown]
  - Device delivery system issue [Unknown]

NARRATIVE: CASE EVENT DATE: 20250101
